FAERS Safety Report 4883888-X (Version None)
Quarter: 2006Q1

REPORT INFORMATION
  Report Type: 
  Country: None (occurrence: None)
  Receive Date: 20060118
  Receipt Date: 20060110
  Transmission Date: 20060701
  Serious: Yes (Hospitalization)
  Sender: FDA-Public Use
  Company Number: IT-BRISTOL-MYERS SQUIBB COMPANY-13242888

PATIENT
  Age: 37 Year
  Sex: Male

DRUGS (5)
  1. ABILIFY [Suspect]
     Indication: SCHIZOPHRENIA
     Route: 048
  2. ABILIFY [Suspect]
     Indication: SCHIZOAFFECTIVE DISORDER
     Route: 048
  3. CIPRALEX [Concomitant]
  4. DAVEDAX [Concomitant]
  5. DELORAZEPAM [Concomitant]

REACTIONS (4)
  - FATIGUE [None]
  - HYPERTHERMIA [None]
  - INSOMNIA [None]
  - UNRESPONSIVE TO PAIN STIMULI [None]
